FAERS Safety Report 19247370 (Version 2)
Quarter: 2021Q2

REPORT INFORMATION
  Report Type: Report from Study
  Country: US (occurrence: US)
  Receive Date: 20210512
  Receipt Date: 20210518
  Transmission Date: 20210717
  Serious: No
  Sender: FDA-Public Use
  Company Number: NVSC2021US099132

PATIENT
  Age: 54 Year
  Sex: Female

DRUGS (3)
  1. IBUPROFEN. [Concomitant]
     Active Substance: IBUPROFEN
     Indication: PRODUCT USED FOR UNKNOWN INDICATION
     Route: 065
  2. BENADRYL [Concomitant]
     Active Substance: DIPHENHYDRAMINE HYDROCHLORIDE
     Indication: PRODUCT USED FOR UNKNOWN INDICATION
     Dosage: UNK
     Route: 065
  3. KESIMPTA [Suspect]
     Active Substance: OFATUMUMAB
     Indication: PRODUCT USED FOR UNKNOWN INDICATION
     Dosage: 20 MG, QW
     Route: 058
     Dates: start: 20210420

REACTIONS (9)
  - Headache [Recovering/Resolving]
  - Bladder disorder [Recovering/Resolving]
  - Asthenia [Recovering/Resolving]
  - Body temperature decreased [Recovering/Resolving]
  - Limb discomfort [Recovering/Resolving]
  - Tremor [Recovering/Resolving]
  - Head discomfort [Recovering/Resolving]
  - Gait disturbance [Recovering/Resolving]
  - Migraine [Recovering/Resolving]

NARRATIVE: CASE EVENT DATE: 20210420
